FAERS Safety Report 4954151-3 (Version None)
Quarter: 2006Q1

REPORT INFORMATION
  Report Type: 
  Country: None (occurrence: None)
  Receive Date: 20060327
  Receipt Date: 20060317
  Transmission Date: 20060701
  Serious: Yes (Hospitalization)
  Sender: FDA-Public Use
  Company Number: FR-AVENTIS-200611692EU

PATIENT
  Age: 64 Year
  Sex: Male

DRUGS (4)
  1. FLUDEX [Suspect]
     Indication: ESSENTIAL HYPERTENSION
     Route: 048
     Dates: start: 20051114, end: 20051222
  2. RENITEC [Suspect]
     Indication: ESSENTIAL HYPERTENSION
     Route: 048
     Dates: start: 20051114, end: 20051222
  3. TRIFLUCAN [Concomitant]
     Dates: start: 20051220, end: 20051222
  4. PAROXETINE HYDROCHLORIDE [Concomitant]

REACTIONS (2)
  - HEPATITIS [None]
  - JAUNDICE [None]
